FAERS Safety Report 7435934-7 (Version None)
Quarter: 2011Q2

REPORT INFORMATION
  Report Type: 
  Country: None (occurrence: None)
  Receive Date: 20110425
  Receipt Date: 20110419
  Transmission Date: 20111010
  Serious: Yes (Other)
  Sender: FDA-Public Use
  Company Number: US-PFIZER INC-2011041486

PATIENT
  Sex: Female

DRUGS (2)
  1. LATANOPROST [Suspect]
  2. XALATAN [Suspect]
     Dosage: UNK

REACTIONS (1)
  - VISUAL ACUITY REDUCED [None]
